FAERS Safety Report 7041960-2 (Version None)
Quarter: 2010Q4

REPORT INFORMATION
  Report Type: 
  Country: None (occurrence: None)
  Receive Date: 20101013
  Receipt Date: 20100604
  Transmission Date: 20110411
  Serious: No
  Sender: FDA-Public Use
  Company Number: US-ASTRAZENECA-2010SE26074

PATIENT
  Age: 56 Year
  Sex: Female

DRUGS (3)
  1. SYMBICORT [Suspect]
     Dosage: 160/4.5 UG
     Route: 055
  2. BLOOD PRESSURE MEDICATION [Concomitant]
  3. CHOLESTEROL MEDICATIONS [Concomitant]

REACTIONS (2)
  - EYE PAIN [None]
  - PHOTOPHOBIA [None]
